FAERS Safety Report 5050907-X (Version None)
Quarter: 2006Q3

REPORT INFORMATION
  Report Type: 
  Country: None (occurrence: None)
  Receive Date: 20060710
  Receipt Date: 20060630
  Transmission Date: 20061208
  Serious: Yes (Hospitalization)
  Sender: FDA-Public Use
  Company Number: DE-2006-002285

PATIENT
  Age: 43 Year
  Sex: Female
  Weight: 88 kg

DRUGS (5)
  1. MIRENA [Suspect]
     Indication: CONTRACEPTION
     Dosage: 20 UG/DAY, CONT, INTRA-UTERINE
     Route: 015
     Dates: start: 20050401
  2. CO-DIOVAN (VALSARTAN) [Concomitant]
  3. NOVALGIN /SCH/ (METAMIZOLE SODIUM MONOHYDRATE) [Concomitant]
  4. ACC [Concomitant]
  5. PASPERTIN (METOCLOPRAMIDE HYDROCHLORIDE) [Concomitant]

REACTIONS (6)
  - ABDOMINAL PAIN LOWER [None]
  - AMENORRHOEA [None]
  - BLADDER DISORDER [None]
  - LEIOMYOMA [None]
  - POST PROCEDURAL PULMONARY EMBOLISM [None]
  - WEIGHT INCREASED [None]
